FAERS Safety Report 9508277 (Version 1)
Quarter: 2013Q3

REPORT INFORMATION
  Report Type: Spontaneous
  Country: US (occurrence: US)
  Receive Date: 20130909
  Receipt Date: 20130909
  Transmission Date: 20140515
  Serious: No
  Sender: FDA-Public Use
  Company Number: US-PFIZER INC-2013257939

PATIENT
  Age: 33 Year
  Sex: Female
  Weight: 99.77 kg

DRUGS (21)
  1. LYRICA [Suspect]
     Indication: FIBROMYALGIA
     Dosage: 150 MG (TWO CAPSULES OF 75MG), 3X/DAY
     Route: 048
     Dates: start: 201204, end: 201307
  2. CELEXA [Concomitant]
     Dosage: 20 MG, 1X/DAY
  3. BACLOFEN [Concomitant]
     Dosage: 20 MG, AS NEEDED
  4. PROMETHAZINE [Concomitant]
     Dosage: 25 MG, AS NEEDED
  5. PRILOSEC [Concomitant]
     Indication: DYSPEPSIA
     Dosage: 40 MG, 1X/DAY
  6. BUTALBITAL, ACETAMINOPHEN + CAFFEINE [Concomitant]
     Dosage: 50/325/40MG, AS NEEDED
  7. BYSTOLIC [Concomitant]
     Dosage: 5 MG, 1X/DAY
  8. ELMIRON [Concomitant]
     Dosage: 100 MG, 3X/DAY
  9. VITAMIN D [Concomitant]
     Dosage: UNK
  10. VITAMIN E [Concomitant]
     Dosage: UNK
  11. WELLBUTRIN XL [Concomitant]
     Dosage: 300 MG, 1X/DAY
  12. CLONAZEPAM [Concomitant]
     Dosage: 0.025 MG, 3X/DAY
  13. TRAMADOL [Concomitant]
     Dosage: 50 MG, AS NEEDED
  14. DITROPAN XL [Concomitant]
     Dosage: 15 MG, 1X/DAY
  15. BIOTIN [Concomitant]
     Dosage: 1000 MG, 1X/DAY
  16. FLONASE [Concomitant]
     Dosage: 50 MG, MONTHLY
     Route: 045
  17. IMITREX [Concomitant]
     Indication: MIGRAINE
     Dosage: 100 MG, AS NEEDED
  18. AMITRIPTYLINE [Concomitant]
     Dosage: 50 MG, 1X/DAY
  19. CAMAZOL [Concomitant]
     Indication: NAUSEA
     Dosage: 5 MG, AS NEEDED
  20. HYDROXYZINE [Concomitant]
     Indication: ANXIETY
     Dosage: 25 MG, AS NEEDED
  21. LOESTRIN 24 FE [Concomitant]
     Indication: CONTRACEPTION
     Dosage: UNK, 1X/DAY

REACTIONS (4)
  - Pain [Unknown]
  - Pain [Unknown]
  - Sleep disorder [Unknown]
  - Discomfort [Unknown]
